FAERS Safety Report 6724554-5 (Version None)
Quarter: 2010Q2

REPORT INFORMATION
  Report Type: 
  Country: None (occurrence: None)
  Receive Date: 20100513
  Receipt Date: 20100505
  Transmission Date: 20101027
  Serious: Yes (Other)
  Sender: FDA-Public Use
  Company Number: CA-PFIZER INC-2010036588

PATIENT
  Age: 53 Year
  Sex: Male
  Weight: 83.9 kg

DRUGS (5)
  1. LIPITOR [Suspect]
     Indication: BLOOD CHOLESTEROL ABNORMAL
     Dosage: 20 MG, 1X/DAY (AT BEDTIME)
     Dates: end: 20100301
  2. MODECATE ^SQUIBB^ [Concomitant]
     Dosage: UNK
  3. RISPERIDONE [Concomitant]
     Indication: SCHIZOPHRENIA
     Dosage: 1 MG, 1X/DAY (AT BEDTIME)
     Dates: start: 20090101
  4. RAMIPRIL [Concomitant]
     Indication: HYPERTENSION
     Dosage: 5 MG, 1X/DAY
  5. AVANDAMET [Concomitant]
     Indication: BLOOD GLUCOSE ABNORMAL
     Dosage: [METFORMIN HYDROCHLORIDE 500 MG] / [ROSIGLITAZONE 2 MG], TWICE DAILY

REACTIONS (3)
  - CHEST PAIN [None]
  - MYALGIA [None]
  - PAIN IN EXTREMITY [None]
